FAERS Safety Report 11006476 (Version 1)
Quarter: 2015Q2

REPORT INFORMATION
  Report Type: Spontaneous
  Country: US (occurrence: US)
  Receive Date: 20150409
  Receipt Date: 20150409
  Transmission Date: 20150821
  Serious: No
  Sender: FDA-Public Use
  Company Number: US-ALLERGAN-1413680US

PATIENT
  Sex: Female

DRUGS (3)
  1. IRON SUPPLEMENT [Concomitant]
     Active Substance: IRON
     Dosage: UNK
  2. LATISSE [Suspect]
     Active Substance: BIMATOPROST
     Indication: PRODUCT USED FOR UNKNOWN INDICATION
     Dosage: 2 DROPS ON 1 APPLICATOR TO BOTH UPPER EYELIDS NIGHTLY
     Route: 061
     Dates: start: 20140419
  3. COMPOUNDED THYROID MEDICATION [Concomitant]
     Dosage: UNK

REACTIONS (5)
  - Madarosis [Not Recovered/Not Resolved]
  - Drug ineffective [Unknown]
  - Wrong technique in drug usage process [Unknown]
  - Trichorrhexis [Not Recovered/Not Resolved]
  - Product quality issue [Unknown]
